FAERS Safety Report 24964461 (Version 1)
Quarter: 2025Q1

REPORT INFORMATION
  Report Type: Spontaneous
  Country: SG (occurrence: SG)
  Receive Date: 20250213
  Receipt Date: 20250213
  Transmission Date: 20250409
  Serious: Yes (Hospitalization)
  Sender: UNICHEM
  Company Number: SG-UNICHEM LABORATORIES LIMITED-UNI-2025-SG-001241

PATIENT

DRUGS (5)
  1. CLONIDINE [Suspect]
     Active Substance: CLONIDINE
     Indication: Sedation
     Route: 042
  2. CLONIDINE [Suspect]
     Active Substance: CLONIDINE
     Indication: Dystonia
     Route: 042
  3. CLONIDINE [Suspect]
     Active Substance: CLONIDINE
     Indication: Muscle spasticity
     Route: 062
  4. GABAPENTIN [Concomitant]
     Active Substance: GABAPENTIN
     Indication: Dystonia
     Route: 062
  5. GABAPENTIN [Concomitant]
     Active Substance: GABAPENTIN
     Indication: Muscle spasticity

REACTIONS (4)
  - Hypotension [Recovering/Resolving]
  - Bradycardia [Recovering/Resolving]
  - Sedation [Recovering/Resolving]
  - Rash [Unknown]
